FAERS Safety Report 4631004-1 (Version None)
Quarter: 2005Q2

REPORT INFORMATION
  Report Type: 
  Country: None (occurrence: None)
  Receive Date: 20050406
  Receipt Date: 20050406
  Transmission Date: 20051028
  Serious: Yes (Life-Threatening)
  Sender: FDA-Public Use
  Company Number: None

PATIENT
  Age: 74 Year
  Sex: Female
  Weight: 65.9076 kg

DRUGS (6)
  1. RITUXIMAB 10MG/ML GENETECH, INC. [Suspect]
     Indication: MANTLE CELL LYMPHOMA
     Dosage: 637MG  EVERY 21 DAYS INTRAVENOUS
     Route: 042
     Dates: start: 20050214, end: 20050328
  2. TOPROL-XL [Concomitant]
  3. LOTREL [Concomitant]
  4. LIPITOR [Concomitant]
  5. LEVOXYL [Concomitant]
  6. ASPIRIN [Concomitant]

REACTIONS (4)
  - BLOOD PRESSURE DECREASED [None]
  - HEART RATE DECREASED [None]
  - PRURITUS [None]
  - URTICARIA [None]
